FAERS Safety Report 9240275 (Version 3)
Quarter: 2013Q2

REPORT INFORMATION
  Report Type: Spontaneous
  Country: US (occurrence: None)
  Receive Date: 20130417
  Receipt Date: 20130506
  Transmission Date: 20140414
  Serious: Yes (Hospitalization, Other)
  Sender: FDA-Public Use
  Company Number: AUR-APL-2013-03102

PATIENT
  Age: 15 Year
  Sex: Female

DRUGS (2)
  1. METFORMIN [Suspect]
     Indication: DIABETES MELLITUS
  2. QUETIAPINE [Suspect]
     Indication: PRODUCT USED FOR UNKNOWN INDICATION

REACTIONS (13)
  - Somnolence [None]
  - Lactic acidosis [None]
  - Hypotension [None]
  - Haemodialysis [None]
  - Overdose [None]
  - Hypoglycaemia [None]
  - Intentional overdose [None]
  - Vomiting [None]
  - Self-medication [None]
  - Laceration [None]
  - Blood insulin decreased [None]
  - Poor venous access [None]
  - Hypoperfusion [None]
